FAERS Safety Report 14267645 (Version 1)
Quarter: 2017Q4

REPORT INFORMATION
  Report Type: Spontaneous
  Country: US (occurrence: US)
  Receive Date: 20171210
  Receipt Date: 20171210
  Transmission Date: 20180321
  Serious: No
  Sender: FDA-Public Use
  Company Number: None

PATIENT
  Age: 39 Year
  Sex: Male
  Weight: 78.75 kg

DRUGS (4)
  1. TRAMADOL 50MG TABLETS12/8:18 [Suspect]
     Active Substance: TRAMADOL
     Indication: NAIL DISORDER
     Dosage: ?          QUANTITY:1 TABLET(S);?
     Route: 048
     Dates: start: 20171208, end: 20171209
  2. IBUPROFEN. [Concomitant]
     Active Substance: IBUPROFEN
  3. TRAMADOL 50MG TABLETS12/8:18 [Suspect]
     Active Substance: TRAMADOL
     Indication: BIOPSY
     Dosage: ?          QUANTITY:1 TABLET(S);?
     Route: 048
     Dates: start: 20171208, end: 20171209
  4. TYLENOL [Concomitant]
     Active Substance: ACETAMINOPHEN

REACTIONS (4)
  - Skin disorder [None]
  - Pruritus [None]
  - Urinary retention [None]
  - Feeling abnormal [None]

NARRATIVE: CASE EVENT DATE: 20171209
